FAERS Safety Report 8523719-X (Version None)
Quarter: 2012Q3

REPORT INFORMATION
  Report Type: 
  Country: None (occurrence: None)
  Receive Date: 20120720
  Receipt Date: 20120712
  Transmission Date: 20120928
  Serious: Yes (Hospitalization)
  Sender: FDA-Public Use
  Company Number: JP-JNJFOC-20120500981

PATIENT
  Sex: Female
  Weight: 50 kg

DRUGS (12)
  1. REMICADE [Suspect]
     Dosage: 5 MG/KG
     Route: 042
     Dates: start: 20120322, end: 20120322
  2. PRODIF [Suspect]
     Route: 042
     Dates: start: 20120428, end: 20120501
  3. REMICADE [Suspect]
     Indication: CROHN'S DISEASE
     Dosage: 5 MG/KG
     Route: 042
     Dates: start: 20120405, end: 20120405
  4. PENTASA [Suspect]
     Indication: PRODUCT USED FOR UNKNOWN INDICATION
     Route: 048
  5. PRODIF [Suspect]
     Route: 042
     Dates: start: 20120502, end: 20120507
  6. EXFORGE [Concomitant]
     Indication: HYPERTENSION
     Dosage: FREQUENCY: 1 TABLET
     Route: 048
     Dates: start: 20110717
  7. MIYA BM [Concomitant]
     Indication: CROHN'S DISEASE
     Route: 048
     Dates: start: 20091120
  8. REMICADE [Suspect]
     Route: 042
     Dates: start: 20120523
  9. PRODIF [Suspect]
     Route: 042
     Dates: start: 20120514
  10. PRODIF [Suspect]
     Indication: UPPER RESPIRATORY FUNGAL INFECTION
     Route: 042
     Dates: start: 20120426, end: 20120427
  11. PRODIF [Suspect]
     Route: 042
     Dates: start: 20120515, end: 20120516
  12. SULFASALAZINE [Concomitant]
     Indication: CROHN'S DISEASE
     Route: 048
     Dates: start: 20100625

REACTIONS (6)
  - UPPER RESPIRATORY FUNGAL INFECTION [None]
  - STOMATITIS [None]
  - TYPE IV HYPERSENSITIVITY REACTION [None]
  - RECTAL ULCER [None]
  - SENSATION OF FOREIGN BODY [None]
  - PYREXIA [None]
